FAERS Safety Report 8846005 (Version 1)
Quarter: 2012Q4

REPORT INFORMATION
  Report Type: 
  Country: TR (occurrence: TR)
  Receive Date: 20121017
  Receipt Date: 20121017
  Transmission Date: 20130627
  Serious: Yes (Life-Threatening)
  Sender: FDA-Public Use
  Company Number: TR-ASTRAZENECA-2012SE78999

PATIENT
  Age: 31 Year
  Sex: Female
  Weight: 68 kg

DRUGS (2)
  1. MARCAINE [Suspect]
     Indication: SPINAL ANAESTHESIA
     Dosage: UNKNOWN DOSE ONCE/SINGLE ADMINISTARTION
     Route: 037
  2. DORMICUM [Concomitant]
     Route: 042

REACTIONS (2)
  - Anaphylactic shock [Recovered/Resolved]
  - Exposure during pregnancy [None]
